FAERS Safety Report 7373133-8 (Version None)
Quarter: 2011Q1

REPORT INFORMATION
  Report Type: 
  Country: None (occurrence: None)
  Receive Date: 20110324
  Receipt Date: 20110322
  Transmission Date: 20110831
  Serious: Yes (Other)
  Sender: FDA-Public Use
  Company Number: TR-CEPHALON-2010005034

PATIENT
  Age: 31 Year
  Sex: Male

DRUGS (5)
  1. MODAFINIL [Suspect]
     Route: 048
  2. MODAFINIL [Suspect]
     Indication: SEDATION
     Route: 048
  3. CLOZAPINE [Concomitant]
     Dates: start: 20060101
  4. CLOZAPINE [Concomitant]
     Dates: end: 20060101
  5. MODAFINIL [Suspect]
     Route: 048

REACTIONS (5)
  - HYPOMANIA [None]
  - LOGORRHOEA [None]
  - SPEECH DISORDER [None]
  - IRRITABILITY [None]
  - PSYCHOMOTOR HYPERACTIVITY [None]
